FAERS Safety Report 7790980-9 (Version None)
Quarter: 2011Q4

REPORT INFORMATION
  Report Type: 
  Country: None (occurrence: None)
  Receive Date: 20111002
  Receipt Date: 20110923
  Transmission Date: 20120403
  Serious: Yes (Hospitalization, Other)
  Sender: FDA-Public Use
  Company Number: PHEH2011US01768

PATIENT
  Sex: Female

DRUGS (7)
  1. TOBI [Suspect]
     Indication: BRONCHIECTASIS
     Dosage: 300 MG, BID
     Dates: start: 20110808, end: 20110815
  2. SPIRIVA [Concomitant]
  3. SYNTHROID [Concomitant]
  4. NOXAFIL [Concomitant]
  5. FENTANYL [Concomitant]
  6. ALVESCO [Concomitant]
  7. BROVANA [Concomitant]
     Dosage: UNK

REACTIONS (8)
  - CANDIDIASIS [None]
  - CHEST DISCOMFORT [None]
  - TOOTH DISORDER [None]
  - PULMONARY CONGESTION [None]
  - OXYGEN SATURATION DECREASED [None]
  - BRONCHOSPASM [None]
  - DEVICE MALFUNCTION [None]
  - EMPHYSEMA [None]
